FAERS Safety Report 8273997-X (Version None)
Quarter: 2012Q2

REPORT INFORMATION
  Report Type: 
  Country: None (occurrence: None)
  Receive Date: 20120411
  Receipt Date: 20120402
  Transmission Date: 20120825
  Serious: Yes (Other)
  Sender: FDA-Public Use
  Company Number: US-ASTRAZENECA-2011SE36163

PATIENT
  Age: 52 Year
  Sex: Male
  Weight: 127 kg

DRUGS (5)
  1. SEROQUEL XR [Suspect]
     Indication: HALLUCINATION, AUDITORY
     Route: 048
  2. SEROQUEL XR [Suspect]
     Route: 048
     Dates: start: 20010101
  3. 10 OTHER MEDICATIONS [Concomitant]
  4. SEROQUEL XR [Suspect]
     Indication: MENTAL DISORDER
     Route: 048
  5. SEROQUEL XR [Suspect]
     Route: 048
     Dates: start: 20010101

REACTIONS (4)
  - CARDIAC DISORDER [None]
  - HEART RATE IRREGULAR [None]
  - FATIGUE [None]
  - CARDIAC FAILURE CONGESTIVE [None]
